FAERS Safety Report 5128311-5 (Version None)
Quarter: 2006Q4

REPORT INFORMATION
  Report Type: 
  Country: None (occurrence: None)
  Receive Date: 20061011
  Receipt Date: 20060821
  Transmission Date: 20070319
  Serious: Yes (Other)
  Sender: FDA-Public Use
  Company Number: 2006104951

PATIENT
  Age: 74 Year
  Sex: Female

DRUGS (1)
  1. ATORVASTATIN CALCIUM [Suspect]
     Dosage: 10 MG (1 IN 1 D), ORAL
     Route: 048

REACTIONS (5)
  - ARTHRALGIA [None]
  - BORRELIA INFECTION [None]
  - NERVE INJURY [None]
  - NEURALGIA [None]
  - PAIN IN EXTREMITY [None]
